FAERS Safety Report 9717796 (Version 4)
Quarter: 2014Q2

REPORT INFORMATION
  Report Type: Report from Study
  Country: IL (occurrence: IL)
  Receive Date: 20131127
  Receipt Date: 20140407
  Transmission Date: 20141212
  Serious: Yes (Death, Hospitalization)
  Sender: FDA-Public Use
  Company Number: IL-GLAXOSMITHKLINE-Z0020889A

PATIENT
  Age: 29 Year
  Sex: Female

DRUGS (8)
  1. ELTROMBOPAG [Suspect]
     Indication: THROMBOCYTOPENIA
     Dosage: 100MG PER DAY
     Route: 048
     Dates: start: 20130721, end: 20130730
  2. PREDNISONE [Concomitant]
  3. CYCLOSPORINE [Concomitant]
  4. VALTREX [Concomitant]
  5. RESPRIM [Concomitant]
  6. ANTIFUNGAL [Concomitant]
  7. SORAFENIB [Concomitant]
  8. URSOLIT [Concomitant]

REACTIONS (1)
  - Arterial thrombosis [Fatal]
